FAERS Safety Report 25713021 (Version 2)
Quarter: 2025Q3

REPORT INFORMATION
  Report Type: Spontaneous
  Country: JP (occurrence: JP)
  Receive Date: 20250821
  Receipt Date: 20250903
  Transmission Date: 20251020
  Serious: Yes (Other)
  Sender: CSL BEHRING
  Company Number: JP-BEH-2025216242

PATIENT
  Age: 38 Year
  Sex: Female
  Weight: 50 kg

DRUGS (2)
  1. HUMAN IMMUNOGLOBULIN G [Suspect]
     Active Substance: HUMAN IMMUNOGLOBULIN G
     Indication: Muscular weakness
     Dosage: UNK UNK, Q3W
     Route: 042
     Dates: start: 2024
  2. METHYLPREDNISOLONE SODIUM SUCCINATE [Concomitant]
     Active Substance: METHYLPREDNISOLONE SODIUM SUCCINATE
     Indication: Muscular weakness
     Dosage: UNK UNK, Q3W
     Route: 042
     Dates: start: 2024

REACTIONS (6)
  - Chronic inflammatory demyelinating polyradiculoneuropathy [Unknown]
  - Muscular weakness [Unknown]
  - Dysstasia [Unknown]
  - Hyporeflexia [Unknown]
  - Areflexia [Unknown]
  - Tandem gait test abnormal [Unknown]

NARRATIVE: CASE EVENT DATE: 20240101
